FAERS Safety Report 6261297-9 (Version None)
Quarter: 2009Q3

REPORT INFORMATION
  Report Type: 
  Country: None (occurrence: None)
  Receive Date: 20090709
  Receipt Date: 20090629
  Transmission Date: 20100115
  Serious: Yes (Other)
  Sender: FDA-Public Use
  Company Number: US-ROCHE-640641

PATIENT
  Sex: Male
  Weight: 1 kg

DRUGS (10)
  1. MYCOPHENOLATE MOFETIL [Suspect]
     Indication: LUPUS NEPHRITIS
     Dosage: DISCONTINUED AT 12 WEEKS.
     Route: 064
  2. MYCOPHENOLATE MOFETIL [Suspect]
     Dosage: DISCONTINUED FOR 2 MONTHS
     Route: 064
  3. PREDNISONE [Suspect]
     Indication: LUPUS NEPHRITIS
     Dosage: RECEIVED THROUGHOUT PREGNANCY.
  4. LISINOPRIL [Suspect]
     Indication: DRUG USE FOR UNKNOWN INDICATION
     Dosage: DISCONTINUED IN EARLY PREGNANCY.
  5. HYDROXYCHLOROQUINE SULFATE [Suspect]
     Indication: DRUG USE FOR UNKNOWN INDICATION
     Dosage: DISCONTINUED IN EARLY PREGNANCY.
  6. IRON [Concomitant]
  7. VITAMIN [Concomitant]
     Dosage: PRENATAL VITAMINS.
  8. CALCIUM [Concomitant]
  9. VITAMINE D [Concomitant]
     Dosage: DRUG; VITAMIN D.
  10. ACETAMINOPHEN [Concomitant]

REACTIONS (6)
  - CONDUCTIVE DEAFNESS [None]
  - EXTERNAL AUDITORY CANAL ATRESIA [None]
  - FOETAL GROWTH RETARDATION [None]
  - INGUINAL HERNIA [None]
  - MICROCEPHALY [None]
  - MICROTIA [None]
